FAERS Safety Report 23540130 (Version 1)
Quarter: 2024Q1

REPORT INFORMATION
  Report Type: Spontaneous
  Country: US (occurrence: US)
  Receive Date: 20240219
  Receipt Date: 20240219
  Transmission Date: 20240410
  Serious: No
  Sender: FDA-Public Use
  Company Number: US-BoehringerIngelheim-2024-BI-008187

PATIENT
  Age: 79 Year
  Sex: Female

DRUGS (2)
  1. GILOTRIF [Suspect]
     Active Substance: AFATINIB
     Indication: Product used for unknown indication
     Dosage: AN EMPTY STOMACH
     Route: 048
  2. GILOTRIF [Suspect]
     Active Substance: AFATINIB
     Route: 048

REACTIONS (7)
  - Alopecia [Unknown]
  - Rash [Unknown]
  - Decreased appetite [Unknown]
  - Drug intolerance [Unknown]
  - Overdose [Unknown]
  - Gait disturbance [Unknown]
  - Dyspnoea [Unknown]
